FAERS Safety Report 22197210 (Version 1)
Quarter: 2023Q2

REPORT INFORMATION
  Report Type: Spontaneous
  Country: US (occurrence: None)
  Receive Date: 20230410
  Receipt Date: 20230410
  Transmission Date: 20230721
  Serious: No
  Sender: FDA-Public Use
  Company Number: None

PATIENT
  Sex: 0

DRUGS (2)
  1. IBUPROFEN CHILDRENS [Suspect]
     Active Substance: IBUPROFEN
  2. ACETAMINOPHEN [Suspect]
     Active Substance: ACETAMINOPHEN

REACTIONS (2)
  - Product packaging confusion [None]
  - Circumstance or information capable of leading to medication error [None]
